FAERS Safety Report 20572319 (Version 3)
Quarter: 2022Q4

REPORT INFORMATION
  Report Type: Spontaneous
  Country: JP (occurrence: JP)
  Receive Date: 20220309
  Receipt Date: 20221205
  Transmission Date: 20230113
  Serious: Yes (Life-Threatening, Other)
  Sender: FDA-Public Use
  Company Number: JP-MYLANLABS-2022M1016479

PATIENT
  Age: 42 Year
  Sex: Male
  Weight: 25.5 kg

DRUGS (7)
  1. ERYTHROMYCIN [Interacting]
     Active Substance: ERYTHROMYCIN
     Indication: Respiratory tract infection
     Dosage: 200 MILLIGRAM, BID
     Route: 048
     Dates: start: 20210726, end: 20210812
  2. TEGRETOL [Interacting]
     Active Substance: CARBAMAZEPINE
     Indication: Epilepsy
     Dosage: 300 MILLIGRAM, BID
     Route: 048
  3. VALPROATE SODIUM [Concomitant]
     Active Substance: VALPROATE SODIUM
     Indication: Product used for unknown indication
     Route: 048
  4. MYSTAN [Concomitant]
     Active Substance: CLOBAZAM
     Indication: Product used for unknown indication
     Route: 048
  5. MAGNESIUM OXIDE [Concomitant]
     Active Substance: MAGNESIUM OXIDE
     Indication: Product used for unknown indication
     Route: 048
  6. LAMOTRIGINE [Concomitant]
     Active Substance: LAMOTRIGINE
     Indication: Product used for unknown indication
     Route: 048
  7. TAMSULOSIN HYDROCHLORIDE [Concomitant]
     Active Substance: TAMSULOSIN HYDROCHLORIDE
     Indication: Product used for unknown indication
     Route: 048

REACTIONS (4)
  - Hypoglycaemia [Recovered/Resolved]
  - Vomiting [Recovered/Resolved]
  - Labelled drug-drug interaction medication error [Unknown]
  - Inappropriate schedule of product administration [Unknown]

NARRATIVE: CASE EVENT DATE: 20210812
